FAERS Safety Report 10020864 (Version 2)
Quarter: 2014Q2

REPORT INFORMATION
  Report Type: Spontaneous
  Country: US (occurrence: None)
  Receive Date: 20140313
  Receipt Date: 20140417
  Transmission Date: 20141212
  Serious: Yes (Hospitalization, Other)
  Sender: FDA-Public Use
  Company Number: 2014EXPUS00176

PATIENT
  Age: 42 Year
  Sex: Female
  Weight: 48.5 kg

DRUGS (2)
  1. EXPAREL (BUPIVACAINE) LIPOSOME INJECTABLE SUSPENSION, MG/ML [Suspect]
     Indication: POSTOPERATIVE ANALGESIA
     Dosage: 20 CC, 1X, INFILTRATION
     Dates: start: 201402, end: 201402
  2. MARCAINE (BUPIVACAINE HYDROCHLORIDE) [Concomitant]

REACTIONS (12)
  - Haemorrhagic anaemia [None]
  - Swelling [None]
  - Peripheral ischaemia [None]
  - Blister [None]
  - Blood disorder [None]
  - White blood cell count increased [None]
  - Ecchymosis [None]
  - Neutrophil count increased [None]
  - Nausea [None]
  - Vomiting [None]
  - Pain [None]
  - Haemarthrosis [None]
